FAERS Safety Report 20369393 (Version 2)
Quarter: 2022Q1

REPORT INFORMATION
  Report Type: Report from Study
  Country: CA (occurrence: CA)
  Receive Date: 20220124
  Receipt Date: 20220208
  Transmission Date: 20220424
  Serious: Yes (Hospitalization, Other)
  Sender: FDA-Public Use
  Company Number: CA-BEH-2022141002

PATIENT
  Age: 64 Year
  Sex: Female
  Weight: 77.1 kg

DRUGS (1)
  1. HIZENTRA [Suspect]
     Active Substance: HUMAN IMMUNOGLOBULIN G
     Indication: Primary immunodeficiency syndrome
     Dosage: 15 GRAM, QW
     Route: 050
     Dates: start: 20191112, end: 202112

REACTIONS (15)
  - Jaundice [Unknown]
  - Anaemia [Unknown]
  - Fall [Unknown]
  - Clavicle fracture [Unknown]
  - Fractured coccyx [Unknown]
  - Spinal fracture [Unknown]
  - Peroneal nerve palsy [Unknown]
  - Infection parasitic [Unknown]
  - Insomnia [Unknown]
  - Visual impairment [Unknown]
  - Musculoskeletal disorder [Unknown]
  - No adverse event [Unknown]
  - Product dose omission issue [Unknown]
  - Diarrhoea [Unknown]
  - Fall [Unknown]

NARRATIVE: CASE EVENT DATE: 20210101
